FAERS Safety Report 7153920-1 (Version None)
Quarter: 2010Q4

REPORT INFORMATION
  Report Type: 
  Country: None (occurrence: None)
  Receive Date: 20101213
  Receipt Date: 20101130
  Transmission Date: 20110411
  Serious: Yes (Other)
  Sender: FDA-Public Use
  Company Number: PHHY2010MX33862

PATIENT
  Sex: Male

DRUGS (2)
  1. EXFORGE [Suspect]
     Indication: HYPERTENSION
     Dosage: 1 DF, DAILY
     Route: 048
     Dates: start: 20100201
  2. AMARYL [Concomitant]
     Indication: DIABETES MELLITUS
     Dosage: 1 DF, DAILY
     Dates: start: 20100301

REACTIONS (6)
  - BLOOD PRESSURE INCREASED [None]
  - CEREBRAL ARTERY EMBOLISM [None]
  - DYSARTHRIA [None]
  - RENAL DISORDER [None]
  - URINARY TRACT INFECTION [None]
  - VIITH NERVE PARALYSIS [None]
